FAERS Safety Report 17415540 (Version 1)
Quarter: 2020Q1

REPORT INFORMATION
  Report Type: Spontaneous
  Country: US (occurrence: US)
  Receive Date: 20200130
  Receipt Date: 20200130
  Transmission Date: 20200409
  Serious: No
  Sender: FDA-Public Use
  Company Number: None

PATIENT
  Age: 71 Year
  Sex: Male

DRUGS (16)
  1. OCALIVA [Suspect]
     Active Substance: OBETICHOLIC ACID
     Indication: PRIMARY BILIARY CHOLANGITIS
     Route: 048
     Dates: start: 20190813
  2. ALBUTEROL. [Concomitant]
     Active Substance: ALBUTEROL
  3. FAMOTIDINE. [Concomitant]
     Active Substance: FAMOTIDINE
  4. GABAPENTIN. [Concomitant]
     Active Substance: GABAPENTIN
  5. TAMSULOSIN [Concomitant]
     Active Substance: TAMSULOSIN
  6. RIFAMPIN. [Concomitant]
     Active Substance: RIFAMPIN
  7. PRIMIDONE. [Concomitant]
     Active Substance: PRIMIDONE
  8. URSODIOL. [Concomitant]
     Active Substance: URSODIOL
  9. ASPIRIN. [Concomitant]
     Active Substance: ASPIRIN
  10. PANTOPRAZOLE [Concomitant]
     Active Substance: PANTOPRAZOLE
  11. BREO ELLIPTA [Concomitant]
     Active Substance: FLUTICASONE FUROATE\VILANTEROL TRIFENATATE
  12. ALLOPURINOL. [Concomitant]
     Active Substance: ALLOPURINOL
  13. MIRTAZAPINE. [Concomitant]
     Active Substance: MIRTAZAPINE
  14. FLUTICASONE. [Concomitant]
     Active Substance: FLUTICASONE
  15. RANITIDINE. [Concomitant]
     Active Substance: RANITIDINE
  16. TRAMADOL. [Concomitant]
     Active Substance: TRAMADOL

REACTIONS (2)
  - Pruritus [None]
  - Therapy cessation [None]
